FAERS Safety Report 21771714 (Version 1)
Quarter: 2022Q4

REPORT INFORMATION
  Report Type: Spontaneous
  Country: FR (occurrence: FR)
  Receive Date: 20221223
  Receipt Date: 20221223
  Transmission Date: 20230113
  Serious: Yes (Life-Threatening, Other)
  Sender: FDA-Public Use
  Company Number: FR-AFSSAPS-AN20222496

PATIENT
  Age: 62 Year
  Sex: Female
  Weight: 82 kg

DRUGS (7)
  1. DULOXETINE [Interacting]
     Active Substance: DULOXETINE
     Indication: Mixed anxiety and depressive disorder
     Dosage: 60 MILLIGRAM, ONCE A DAY
     Route: 048
     Dates: end: 20221108
  2. GABAPENTIN [Interacting]
     Active Substance: GABAPENTIN
     Indication: Neuralgia
     Dosage: 600 MILLIGRAM, ONCE A DAY
     Route: 048
     Dates: start: 202211, end: 20221108
  3. MIANSERIN [Interacting]
     Active Substance: MIANSERIN
     Indication: Mixed anxiety and depressive disorder
     Dosage: 30 MILLIGRAM, ONCE A DAY
     Route: 048
     Dates: end: 20221108
  4. MORPHINE SULFATE [Interacting]
     Active Substance: MORPHINE SULFATE
     Indication: Pain
     Dosage: 10 MILLIGRAM, AS NECESSARY
     Route: 048
     Dates: end: 20221108
  5. LYRICA [Interacting]
     Active Substance: PREGABALIN
     Indication: Neuralgia
     Dosage: 100 MILLIGRAM, ONCE A DAY
     Route: 048
     Dates: end: 20221108
  6. SKENAN [Interacting]
     Active Substance: MORPHINE SULFATE
     Indication: Pain
     Dosage: 80 MILLIGRAM, ONCE A DAY
     Route: 048
     Dates: end: 20221108
  7. TRIMEPRAZINE [Interacting]
     Active Substance: TRIMEPRAZINE
     Indication: Mixed anxiety and depressive disorder
     Dosage: 10 MILLIGRAM, ONCE A DAY
     Route: 048
     Dates: end: 20221108

REACTIONS (2)
  - Coma [Recovered/Resolved]
  - Drug interaction [Recovered/Resolved]

NARRATIVE: CASE EVENT DATE: 20221108
